FAERS Safety Report 6619977-9 (Version None)
Quarter: 2010Q1

REPORT INFORMATION
  Report Type: 
  Country: None (occurrence: None)
  Receive Date: 20100309
  Receipt Date: 20091210
  Transmission Date: 20100710
  Serious: Yes (Other)
  Sender: FDA-Public Use
  Company Number: ID-SANOFI-AVENTIS-2010SA012642

PATIENT

DRUGS (2)
  1. SOLOSTAR [Suspect]
     Indication: DRUG USE FOR UNKNOWN INDICATION
  2. LANTUS [Suspect]
     Indication: DRUG USE FOR UNKNOWN INDICATION
     Route: 065

REACTIONS (2)
  - DEVICE MALFUNCTION [None]
  - PRODUCT QUALITY ISSUE [None]
